FAERS Safety Report 21836872 (Version 1)
Quarter: 2023Q1

REPORT INFORMATION
  Report Type: Spontaneous
  Country: US (occurrence: None)
  Receive Date: 20230106
  Receipt Date: 20230106
  Transmission Date: 20230418
  Serious: Yes (Other)
  Sender: FDA-Public Use
  Company Number: None

PATIENT
  Sex: Female

DRUGS (5)
  1. GILENYA [Suspect]
     Active Substance: FINGOLIMOD HYDROCHLORIDE
     Indication: Multiple sclerosis
     Dosage: 0.5MG ORAL??TAKE 1 CAPSULE (0.5 MG TOTAL) BY MOUTH DAILY?
     Route: 048
     Dates: start: 20220923
  2. AMBRISENTAN [Concomitant]
     Active Substance: AMBRISENTAN
  3. GLUCOS/CHOND [Concomitant]
  4. TADALAFIL [Concomitant]
     Active Substance: TADALAFIL
  5. TYLENOL [Concomitant]
     Active Substance: ACETAMINOPHEN

REACTIONS (1)
  - Cerebrovascular accident [None]
